FAERS Safety Report 10684680 (Version 1)
Quarter: 2014Q4

REPORT INFORMATION
  Report Type: Spontaneous
  Country: US (occurrence: None)
  Receive Date: 20141230
  Receipt Date: 20141230
  Transmission Date: 20150529
  Serious: Yes (Other)
  Sender: FDA-Public Use
  Company Number: None

PATIENT
  Age: 55 Year
  Sex: Female
  Weight: 102.06 kg

DRUGS (2)
  1. MELOXICAM. [Suspect]
     Active Substance: MELOXICAM
     Indication: OSTEOARTHRITIS
     Dosage: 1 PILL  15 MG / DAY  ONCE DAILY TAKEN BY MOUTH
     Route: 048
     Dates: start: 20141222, end: 20141226
  2. MELOXICAM. [Suspect]
     Active Substance: MELOXICAM
     Indication: MENISCUS INJURY
     Dosage: 1 PILL  15 MG / DAY  ONCE DAILY TAKEN BY MOUTH
     Route: 048
     Dates: start: 20141222, end: 20141226

REACTIONS (5)
  - Somnolence [None]
  - Terminal insomnia [None]
  - Fatigue [None]
  - Chest pain [None]
  - Arrhythmia [None]

NARRATIVE: CASE EVENT DATE: 20141222
